FAERS Safety Report 7047263-4 (Version None)
Quarter: 2010Q4

REPORT INFORMATION
  Report Type: 
  Country: None (occurrence: None)
  Receive Date: 20101015
  Receipt Date: 20101005
  Transmission Date: 20110411
  Serious: Yes (Other)
  Sender: FDA-Public Use
  Company Number: EG-GENZYME-THYM-1001885

PATIENT
  Age: 19 Year
  Sex: Male

DRUGS (4)
  1. THYMOGLOBULIN [Suspect]
     Indication: PROPHYLAXIS AGAINST TRANSPLANT REJECTION
     Route: 042
  2. CORTICOSTEROID NOS [Concomitant]
     Indication: IMMUNOSUPPRESSION
  3. CYCLOSPORINE [Concomitant]
     Indication: IMMUNOSUPPRESSION
  4. AZATHIOPRINE [Concomitant]
     Indication: IMMUNOSUPPRESSION

REACTIONS (7)
  - CHRONIC ALLOGRAFT NEPHROPATHY [None]
  - HIGH TURNOVER OSTEOPATHY [None]
  - HYPERPARATHYROIDISM SECONDARY [None]
  - KIDNEY TRANSPLANT REJECTION [None]
  - OSTEONECROSIS [None]
  - PARATHYROID TUMOUR BENIGN [None]
  - TRANSPLANT FAILURE [None]
